FAERS Safety Report 16452303 (Version 10)
Quarter: 2025Q3

REPORT INFORMATION
  Report Type: Spontaneous
  Country: US (occurrence: US)
  Receive Date: 20190619
  Receipt Date: 20250919
  Transmission Date: 20251020
  Serious: Yes (Death, Life-Threatening, Hospitalization, Other)
  Sender: MYLAN
  Company Number: US-MYLANLABS-2019M1056031

PATIENT
  Age: 30 Year
  Sex: Male
  Weight: 68.94 kg

DRUGS (58)
  1. EPIPEN [Suspect]
     Active Substance: EPINEPHRINE
     Indication: Food allergy
     Dates: start: 20190604, end: 20190604
  2. EPIPEN [Suspect]
     Active Substance: EPINEPHRINE
     Indication: Anaphylactic shock
  3. EPIPEN [Suspect]
     Active Substance: EPINEPHRINE
  4. EPIPEN [Suspect]
     Active Substance: EPINEPHRINE
  5. EPIPEN [Suspect]
     Active Substance: EPINEPHRINE
  6. ACETAMINOPHEN [Concomitant]
     Active Substance: ACETAMINOPHEN
  7. ACETAMINOPHEN [Concomitant]
     Active Substance: ACETAMINOPHEN
  8. ACETAMINOPHEN [Concomitant]
     Active Substance: ACETAMINOPHEN
  9. ACETAMINOPHEN [Concomitant]
     Active Substance: ACETAMINOPHEN
  10. ACETAMINOPHEN [Concomitant]
     Active Substance: ACETAMINOPHEN
     Indication: Pain
  11. ACETAMINOPHEN [Concomitant]
     Active Substance: ACETAMINOPHEN
     Indication: Paroxysmal sympathetic hyperactivity
  12. ALBUTEROL [Concomitant]
     Active Substance: ALBUTEROL
     Indication: Wheezing
  13. ALBUTEROL [Concomitant]
     Active Substance: ALBUTEROL
  14. ALBUTEROL [Concomitant]
     Active Substance: ALBUTEROL
  15. ALBUTEROL [Concomitant]
     Active Substance: ALBUTEROL
     Indication: Wheezing
  16. APIXABAN [Concomitant]
     Active Substance: APIXABAN
     Indication: Embolism venous
  17. APIXABAN [Concomitant]
     Active Substance: APIXABAN
  18. BACLOFEN [Concomitant]
     Active Substance: BACLOFEN
     Dosage: 15 MILLILITER, 3XW
     Dates: start: 20230330
  19. BACLOFEN [Concomitant]
     Active Substance: BACLOFEN
     Dosage: 15 MILLILITER, 3XW
     Dates: start: 20230604
  20. BACLOFEN [Concomitant]
     Active Substance: BACLOFEN
  21. BACLOFEN [Concomitant]
     Active Substance: BACLOFEN
  22. BACLOFEN [Concomitant]
     Active Substance: BACLOFEN
  23. BACLOFEN [Concomitant]
     Active Substance: BACLOFEN
  24. BUDESONIDE\FORMOTEROL [Concomitant]
     Active Substance: BUDESONIDE\FORMOTEROL
     Dosage: 2 DOSAGE FORM, BID
     Dates: start: 20230707
  25. BUDESONIDE\FORMOTEROL FUMARATE DIHYDRATE [Concomitant]
     Active Substance: BUDESONIDE\FORMOTEROL FUMARATE DIHYDRATE
  26. CARBOXYMETHYLCELLULOSE SODIUM [Concomitant]
     Active Substance: CARBOXYMETHYLCELLULOSE SODIUM
  27. CETIRIZINE [Concomitant]
     Active Substance: CETIRIZINE HYDROCHLORIDE
  28. CHLORHEXIDINE [Concomitant]
     Active Substance: CHLORHEXIDINE
  29. CLINDAMYCIN [Concomitant]
     Active Substance: CLINDAMYCIN
  30. CLOBAZAM [Concomitant]
     Active Substance: CLOBAZAM
  31. CLOBAZAM [Concomitant]
     Active Substance: CLOBAZAM
     Dosage: 1 DOSAGE FORM, BID
     Dates: start: 20221130
  32. DIAZEPAM [Concomitant]
     Active Substance: DIAZEPAM
  33. DOCUSATE SODIUM [Concomitant]
     Active Substance: DOCUSATE SODIUM
     Indication: Constipation
  34. DOXYCYCLINE HYCLATE [Concomitant]
     Active Substance: DOXYCYCLINE HYCLATE
     Indication: Pneumonia
  35. ELIQUIS [Concomitant]
     Active Substance: APIXABAN
  36. FAMOTIDINE [Concomitant]
     Active Substance: FAMOTIDINE
  37. BISACODYL [Concomitant]
     Active Substance: BISACODYL
  38. BISACODYL [Concomitant]
     Active Substance: BISACODYL
  39. GUAIFENESIN [Concomitant]
     Active Substance: GUAIFENESIN
  40. GUAIFENESIN [Concomitant]
     Active Substance: GUAIFENESIN
  41. GUAIFENESIN [Concomitant]
     Active Substance: GUAIFENESIN
     Dosage: 400 MILLIGRAM, 3XW
     Dates: start: 20230111
  42. GUAIFENESIN [Concomitant]
     Active Substance: GUAIFENESIN
  43. LEVETIRACETAM [Concomitant]
     Active Substance: LEVETIRACETAM
  44. LEVETIRACETAM [Concomitant]
     Active Substance: LEVETIRACETAM
     Dosage: 10 MILLILITER, 3XW
     Dates: start: 20221118
  45. LEVETIRACETAM [Concomitant]
     Active Substance: LEVETIRACETAM
  46. METOPROLOL TARTRATE [Concomitant]
     Active Substance: METOPROLOL TARTRATE
     Dosage: 25 MILLIGRAM, BID
     Dates: start: 20220106
  47. METOPROLOL TARTRATE [Concomitant]
     Active Substance: METOPROLOL TARTRATE
  48. MICONAZOLE [Concomitant]
     Active Substance: MICONAZOLE
     Indication: Pruritus
  49. MICONAZOLE [Concomitant]
     Active Substance: MICONAZOLE
  50. MORPHINE [Concomitant]
     Active Substance: MORPHINE
     Indication: Pain
     Dosage: 5 MILLIGRAM, BID
     Dates: start: 20230511
  51. MORPHINE [Concomitant]
     Active Substance: MORPHINE
  52. PREDNISONE [Concomitant]
     Active Substance: PREDNISONE
  53. SENNOSIDES [Concomitant]
     Active Substance: SENNOSIDES
  54. SYMBICORT [Concomitant]
     Active Substance: BUDESONIDE\FORMOTEROL FUMARATE DIHYDRATE
  55. VIMPAT [Concomitant]
     Active Substance: LACOSAMIDE
  56. VIMPAT [Concomitant]
     Active Substance: LACOSAMIDE
  57. ATIVAN [Concomitant]
     Active Substance: LORAZEPAM
     Indication: Anxiety
     Dosage: 0.5 MILLIGRAM, Q4H (AS NEEDED )
     Dates: start: 20231006
  58. Fleet [Concomitant]

REACTIONS (3)
  - Cardiac arrest [Fatal]
  - Device failure [Not Recovered/Not Resolved]
  - Needle issue [Not Recovered/Not Resolved]

NARRATIVE: CASE EVENT DATE: 20190604
